FAERS Safety Report 4881141-1 (Version None)
Quarter: 2005Q4

REPORT INFORMATION
  Report Type: 
  Country: None (occurrence: None)
  Receive Date: 20051223
  Receipt Date: 20050915
  Transmission Date: 20060501
  Serious: No
  Sender: FDA-Public Use
  Company Number: 05P-163-0311135-00

PATIENT
  Age: 71 Year
  Sex: Female
  Weight: 48.9885 kg

DRUGS (11)
  1. HUMIRA [Suspect]
     Indication: RHEUMATOID ARTHRITIS
     Dosage: 40 MG, 1 IN 2 WK, SUBCUTANEOUS
     Route: 058
     Dates: start: 20040501, end: 20050630
  2. RISEDRONATE SODIUM [Concomitant]
  3. LEVOTHYROXINE SODIUM [Concomitant]
  4. DIGOXIN [Concomitant]
  5. FOLIC ACID [Concomitant]
  6. ATORVASTATIN CALCIUM [Concomitant]
  7. OMEPRAZOLE [Concomitant]
  8. FEXOFENADINE HYDROCHLORIDE [Concomitant]
  9. NABUMETONE [Concomitant]
  10. METOPROLOL [Concomitant]
  11. ESTRADIOL [Concomitant]

REACTIONS (1)
  - FIBROMYALGIA [None]
